FAERS Safety Report 13362707 (Version 6)
Quarter: 2017Q3

REPORT INFORMATION
  Report Type: Spontaneous
  Country: KR (occurrence: KR)
  Receive Date: 20170323
  Receipt Date: 20170807
  Transmission Date: 20171127
  Serious: Yes (Other)
  Sender: FDA-Public Use
  Company Number: KR-009507513-1703KOR009226

PATIENT
  Age: 67 Year
  Sex: Male
  Weight: 58 kg

DRUGS (18)
  1. SOLU-MEDROL [Concomitant]
     Active Substance: METHYLPREDNISOLONE SODIUM SUCCINATE
     Indication: PROPHYLAXIS OF NAUSEA AND VOMITING
     Dosage: 50 MG, QD
     Route: 042
     Dates: start: 20161006, end: 20161007
  2. CARBOPLATIN. [Concomitant]
     Active Substance: CARBOPLATIN
     Indication: CHEMOTHERAPY
     Dosage: 308 MG, QD, STREGNTH 150MG/15ML
     Route: 042
     Dates: start: 20161025, end: 20161025
  3. EMEND (FOSAPREPITANT DIMEGLUMINE) [Suspect]
     Active Substance: FOSAPREPITANT DIMEGLUMINE
     Dosage: 150 MG, ONCE
     Route: 042
     Dates: start: 20161025, end: 20161025
  4. ETOPOSIDE. [Concomitant]
     Active Substance: ETOPOSIDE
     Indication: HEPATOCELLULAR CARCINOMA
     Dosage: 150 MG, QD (ADMINISTERED FROM D1 TO D3 PERIODICALLY), CYCLE 1
     Route: 042
     Dates: start: 20161005, end: 20161007
  5. ETOPOSIDE. [Concomitant]
     Active Substance: ETOPOSIDE
     Dosage: 120 MG, QD, CYCLE 2
     Route: 042
     Dates: start: 20161025, end: 20161027
  6. EMEND (FOSAPREPITANT DIMEGLUMINE) [Suspect]
     Active Substance: FOSAPREPITANT DIMEGLUMINE
     Indication: PROPHYLAXIS OF NAUSEA AND VOMITING
     Dosage: 150 MG, ONCE
     Route: 042
     Dates: start: 20161005, end: 20161005
  7. ITOMED (ITOPRIDE HYDROCHLORIDE) [Concomitant]
     Indication: FUNCTIONAL GASTROINTESTINAL DISORDER
     Dosage: 50 MG, 1 TABLET, QD
     Route: 048
     Dates: start: 20161004
  8. LANSTON [Concomitant]
     Active Substance: LANSOPRAZOLE
     Indication: GASTRITIS PROPHYLAXIS
     Dosage: 15 MG, 1 TABLET, QD
     Route: 048
     Dates: start: 20161004
  9. KANITRON [Concomitant]
     Dosage: 3 ML, QD (STRENGTH: 3MG/3ML)
     Route: 042
     Dates: start: 20161025, end: 20161027
  10. STOGAR [Concomitant]
     Active Substance: LAFUTIDINE
     Indication: GASTRITIS PROPHYLAXIS
     Dosage: 10 MG, 1 TABLET, BID
     Route: 048
     Dates: start: 20160914
  11. SEPTRIN [Concomitant]
     Active Substance: SULFAMETHOXAZOLE\TRIMETHOPRIM
     Indication: ANTIBIOTIC PROPHYLAXIS
     Dosage: 1 TABLET, QD
     Route: 048
     Dates: start: 20161004
  12. LIVACT [Concomitant]
     Active Substance: AMINO ACIDS
     Indication: PROPHYLAXIS
     Dosage: 1 TABLET, QD
     Route: 048
     Dates: start: 20161004
  13. CISPLAN [Concomitant]
     Active Substance: CISPLATIN
     Indication: HEPATOCELLULAR CARCINOMA
     Dosage: 106 MG, ONCE, CYCLE 1, STREGNTH 50MG/100ML
     Route: 042
     Dates: start: 20161005, end: 20161005
  14. DEXAMETHASONE. [Concomitant]
     Active Substance: DEXAMETHASONE
     Indication: PROPHYLAXIS OF NAUSEA AND VOMITING
     Dosage: 10 MG, ONCE
     Route: 042
     Dates: start: 20161005, end: 20161005
  15. KANITRON [Concomitant]
     Indication: PROPHYLAXIS OF NAUSEA AND VOMITING
     Dosage: 3 ML, QD (STRENGTH: 3MG/3ML)
     Route: 042
     Dates: start: 20161004, end: 20161007
  16. SOLU-MEDROL [Concomitant]
     Active Substance: METHYLPREDNISOLONE SODIUM SUCCINATE
     Dosage: 50 MG, QD
     Route: 042
     Dates: start: 20161025, end: 20161027
  17. TARGIN [Concomitant]
     Active Substance: NALOXONE HYDROCHLORIDE\OXYCODONE HYDROCHLORIDE
     Indication: PAIN PROPHYLAXIS
     Dosage: 5/2.5 MG, 1 TABLET, QD
     Route: 048
     Dates: start: 20161005
  18. DIFLUCAN [Concomitant]
     Active Substance: FLUCONAZOLE
     Indication: PROPHYLAXIS
     Dosage: 35 ML, ONCE (STRENGTH: 0.35G/35ML)
     Route: 048
     Dates: start: 20161004, end: 20161004

REACTIONS (2)
  - Prerenal failure [Recovered/Resolved]
  - Neutropenia [Recovered/Resolved]

NARRATIVE: CASE EVENT DATE: 20161018
